FAERS Safety Report 10469241 (Version 1)
Quarter: 2014Q3

REPORT INFORMATION
  Report Type: Spontaneous
  Country: US (occurrence: None)
  Receive Date: 20140922
  Receipt Date: 20140922
  Transmission Date: 20150326
  Serious: Yes (Life-Threatening, Disabling, Other)
  Sender: FDA-Public Use
  Company Number: None

PATIENT
  Age: 37 Year
  Sex: Male
  Weight: 65.77 kg

DRUGS (1)
  1. FELBATOL [Suspect]
     Active Substance: FELBAMATE
     Indication: EPILEPSY
     Dosage: 3600 MG PER DAY,
     Route: 048
     Dates: start: 20140501, end: 20140919

REACTIONS (17)
  - Faeces pale [None]
  - Myalgia [None]
  - Stomatitis [None]
  - Weight decreased [None]
  - Diarrhoea [None]
  - Myoclonus [None]
  - Anaphylactic shock [None]
  - Insomnia [None]
  - Bone pain [None]
  - Squamous cell carcinoma [None]
  - Convulsion [None]
  - Depression [None]
  - Agitation [None]
  - Malaise [None]
  - Asthenia [None]
  - Hepatomegaly [None]
  - Condition aggravated [None]

NARRATIVE: CASE EVENT DATE: 20140901
